FAERS Safety Report 17911667 (Version 3)
Quarter: 2022Q3

REPORT INFORMATION
  Report Type: Spontaneous
  Country: US (occurrence: US)
  Receive Date: 20200618
  Receipt Date: 20220804
  Transmission Date: 20221026
  Serious: No
  Sender: FDA-Public Use
  Company Number: US-PFIZER INC-2020236384

PATIENT
  Age: 41 Year
  Sex: Female

DRUGS (2)
  1. IBRANCE [Suspect]
     Active Substance: PALBOCICLIB
     Dosage: 125 MG
     Dates: start: 20180625
  2. IBRANCE [Suspect]
     Active Substance: PALBOCICLIB
     Dosage: 125 MG
     Dates: start: 20210901

REACTIONS (7)
  - Odynophagia [Unknown]
  - Dysgeusia [Unknown]
  - Nausea [Unknown]
  - Rash [Unknown]
  - Decreased appetite [Unknown]
  - Diarrhoea [Unknown]
  - Product dose omission issue [Unknown]
